FAERS Safety Report 7637842 (Version 38)
Quarter: 2016Q1

REPORT INFORMATION
  Report Type: Report from Study
  Country: CA (occurrence: CA)
  Receive Date: 20101022
  Receipt Date: 20160324
  Transmission Date: 20160526
  Serious: Yes (Death, Life-Threatening, Hospitalization, Other)
  Sender: FDA-Public Use
  Company Number: PHHY2010CA68802

PATIENT
  Age: 62 Year
  Sex: Male

DRUGS (9)
  1. SANDOSTATIN LAR DEPOT [Suspect]
     Active Substance: OCTREOTIDE ACETATE
     Dosage: 40 MG, QMO
     Route: 030
  2. SANDOSTATIN LAR DEPOT [Suspect]
     Active Substance: OCTREOTIDE ACETATE
     Dosage: 60 MG, QMO
     Route: 030
  3. SANDOSTATIN LAR DEPOT [Suspect]
     Active Substance: OCTREOTIDE ACETATE
     Dosage: 80 MG, QMO
     Route: 030
     Dates: end: 20160122
  4. SPIRONOLACTONE. [Concomitant]
     Active Substance: SPIRONOLACTONE
     Indication: PRODUCT USED FOR UNKNOWN INDICATION
     Dosage: 37.5 OT
     Route: 065
  5. SANDOSTATIN [Suspect]
     Active Substance: OCTREOTIDE ACETATE
     Indication: METASTATIC CARCINOID TUMOUR
     Dosage: UNK, TEST DOSE
     Route: 058
     Dates: start: 20091123, end: 20091123
  6. COUMADINE [Concomitant]
     Active Substance: WARFARIN SODIUM
     Indication: PRODUCT USED FOR UNKNOWN INDICATION
     Route: 065
  7. SANDOSTATIN LAR DEPOT [Suspect]
     Active Substance: OCTREOTIDE ACETATE
     Indication: METASTATIC CARCINOID TUMOUR
     Dosage: 30 MG, QMO
     Route: 030
     Dates: start: 20091217, end: 20110912
  8. GABAPENTINE [Concomitant]
     Active Substance: GABAPENTIN
     Indication: PRODUCT USED FOR UNKNOWN INDICATION
     Dosage: 300 OT, TID
     Route: 065
  9. MONOCOR [Concomitant]
     Active Substance: BISOPROLOL FUMARATE
     Indication: PRODUCT USED FOR UNKNOWN INDICATION
     Dosage: 2.5 OT
     Route: 065

REACTIONS (51)
  - Tricuspid valve incompetence [Unknown]
  - Intervertebral disc protrusion [Not Recovered/Not Resolved]
  - Sciatica [Recovered/Resolved]
  - Sputum discoloured [Unknown]
  - Body temperature decreased [Unknown]
  - Myalgia [Unknown]
  - Skin discolouration [Unknown]
  - Asthenia [Unknown]
  - Product quality issue [Unknown]
  - Fall [Unknown]
  - Arthralgia [Unknown]
  - Skin mass [Unknown]
  - Atrial fibrillation [Unknown]
  - Fluid retention [Unknown]
  - Muscle spasms [Unknown]
  - Oropharyngeal pain [Recovered/Resolved]
  - Pruritus [Recovering/Resolving]
  - Headache [Unknown]
  - Injection site induration [Unknown]
  - Death [Fatal]
  - Hip fracture [Unknown]
  - Tricuspid valve disease [Unknown]
  - Erythema [Not Recovered/Not Resolved]
  - Memory impairment [Unknown]
  - Disturbance in attention [Unknown]
  - Blood pressure fluctuation [Unknown]
  - Nasopharyngitis [Recovered/Resolved]
  - Flushing [Not Recovered/Not Resolved]
  - Hernia [Unknown]
  - Productive cough [Recovered/Resolved]
  - Bowel movement irregularity [Unknown]
  - Injection site mass [Unknown]
  - Needle issue [Unknown]
  - Peripheral swelling [Unknown]
  - Pain in extremity [Unknown]
  - Pollakiuria [Unknown]
  - Blood pressure decreased [Unknown]
  - Osteoarthritis [Recovering/Resolving]
  - Heart rate decreased [Unknown]
  - Cardiac failure [Unknown]
  - Liver disorder [Unknown]
  - Peripheral vascular disorder [Unknown]
  - Acne [Recovering/Resolving]
  - Diarrhoea [Not Recovered/Not Resolved]
  - Groin pain [Unknown]
  - Mobility decreased [Unknown]
  - Blood pressure diastolic increased [Unknown]
  - Insomnia [Unknown]
  - Fatigue [Unknown]
  - Drug effect decreased [Unknown]
  - Injection site pain [Unknown]

NARRATIVE: CASE EVENT DATE: 201111
